FAERS Safety Report 9785313 (Version 2)
Quarter: 2014Q1

REPORT INFORMATION
  Report Type: Report from Study
  Country: US (occurrence: US)
  Receive Date: 20131227
  Receipt Date: 20140114
  Transmission Date: 20141002
  Serious: Yes (Hospitalization)
  Sender: FDA-Public Use
  Company Number: US-JNJFOC-20131213249

PATIENT
  Age: 15 Year
  Sex: Male
  Weight: 66.4 kg

DRUGS (5)
  1. REMICADE [Suspect]
     Indication: INFLAMMATORY BOWEL DISEASE
     Route: 042
     Dates: start: 20110822, end: 20120718
  2. HUMIRA [Concomitant]
     Route: 065
     Dates: start: 20120718
  3. FISH OIL [Concomitant]
     Route: 065
  4. VITAMIN D [Concomitant]
     Route: 065
  5. MULTIVITAMINS [Concomitant]
     Route: 065

REACTIONS (1)
  - Small intestinal obstruction [Recovered/Resolved]
